FAERS Safety Report 18265386 (Version 1)
Quarter: 2020Q3

REPORT INFORMATION
  Report Type: Other
  Country: US (occurrence: US)
  Receive Date: 20200914
  Receipt Date: 20200914
  Transmission Date: 20201103
  Serious: No
  Sender: FDA-Public Use
  Company Number: US-LEADIANT BIOSCIENCES INC-2020STPI000159

PATIENT
  Sex: Male

DRUGS (9)
  1. GLEOSTINE [Concomitant]
     Active Substance: LOMUSTINE
  2. ONDANSETRON [Concomitant]
     Active Substance: ONDANSETRON
  3. DOX [DOXEPIN HYDROCHLORIDE] [Concomitant]
  4. DEXAMETHASONE. [Concomitant]
     Active Substance: DEXAMETHASONE
  5. GABAPENTIN. [Concomitant]
     Active Substance: GABAPENTIN
  6. LEVETIRACETAM. [Concomitant]
     Active Substance: LEVETIRACETAM
  7. BUTALBITAL, ACETAMINOPHEN, AND CAFFEINE [Concomitant]
     Active Substance: ACETAMINOPHEN\BUTALBITAL\CAFFEINE
  8. MATULANE [Suspect]
     Active Substance: PROCARBAZINE HYDROCHLORIDE
     Indication: BRAIN NEOPLASM MALIGNANT
     Dosage: QD DAY 8?21 X 42 DAY CYCLE
     Route: 048
  9. ESCITALOPRAM [Concomitant]
     Active Substance: ESCITALOPRAM OXALATE

REACTIONS (1)
  - Nausea [Unknown]
